FAERS Safety Report 7537602-X (Version None)
Quarter: 2011Q2

REPORT INFORMATION
  Report Type: 
  Country: None (occurrence: None)
  Receive Date: 20110609
  Receipt Date: 20070627
  Transmission Date: 20111010
  Serious: Yes (Death)
  Sender: FDA-Public Use
  Company Number: PHFR2007IE01600

PATIENT
  Sex: Male

DRUGS (3)
  1. CLOZAPINE [Suspect]
     Indication: SCHIZOPHRENIA
     Dosage: 1785 MG, UNK
     Route: 048
     Dates: start: 20010424
  2. SOLIAN [Concomitant]
     Indication: SCHIZOPHRENIA
     Dosage: 100 MG, BID
  3. VALPROIC ACID [Concomitant]
     Dosage: 300 MG, BID
     Route: 048

REACTIONS (2)
  - DEATH [None]
  - ANTICONVULSANT DRUG LEVEL DECREASED [None]
